FAERS Safety Report 11716979 (Version 2)
Quarter: 2016Q1

REPORT INFORMATION
  Report Type: Spontaneous
  Country: FR (occurrence: FR)
  Receive Date: 20151109
  Receipt Date: 20160125
  Transmission Date: 20160525
  Serious: Yes (Hospitalization)
  Sender: FDA-Public Use
  Company Number: FR-BAXTER-2015BAX059245

PATIENT
  Age: 1 Year
  Sex: Male
  Weight: 9.7 kg

DRUGS (32)
  1. PHOCYTAN [Suspect]
     Active Substance: .ALPHA.-GLUCOSE-1-PHOSPHATE
     Indication: PARENTERAL NUTRITION
     Dosage: FORMULA 1
     Route: 042
     Dates: end: 20150923
  2. PHOCYTAN [Suspect]
     Active Substance: .ALPHA.-GLUCOSE-1-PHOSPHATE
     Dosage: FORMULA 2
     Route: 042
     Dates: start: 20150924, end: 20151007
  3. PHOCYTAN [Suspect]
     Active Substance: .ALPHA.-GLUCOSE-1-PHOSPHATE
     Dosage: FORMULA 1
     Route: 042
     Dates: start: 20151008, end: 20151028
  4. SODIUM CHLORIDE. [Suspect]
     Active Substance: SODIUM CHLORIDE
     Dosage: FORMULA 2
     Route: 042
     Dates: start: 20150924, end: 20151007
  5. CALCIUM GLUCONATE. [Suspect]
     Active Substance: CALCIUM GLUCONATE
     Dosage: FORMULA 1
     Route: 042
     Dates: start: 20151008, end: 20151028
  6. INSULIN [Concomitant]
     Active Substance: INSULIN NOS
     Indication: DIABETES MELLITUS
     Dosage: BOLUS
     Route: 065
  7. INSULIN [Concomitant]
     Active Substance: INSULIN NOS
     Dosage: INSULIN PUMP
     Route: 065
  8. SOLUTION INJECTABLE DE GLUCOSE A 50 % BAXTER, SOLUTION POUR PERFUSION [Suspect]
     Active Substance: DEXTROSE
     Indication: PARENTERAL NUTRITION
     Dosage: FORMULA 1
     Route: 042
     Dates: end: 20150923
  9. CERNEVIT [Suspect]
     Active Substance: VITAMINS
     Indication: PARENTERAL NUTRITION
     Dosage: FORMULA 1
     Route: 042
     Dates: end: 20150923
  10. POTASSIUM CHLORIDE. [Suspect]
     Active Substance: POTASSIUM CHLORIDE
     Dosage: FORMULA 2
     Route: 042
     Dates: start: 20150924, end: 20151007
  11. SODIUM LACTATE. [Suspect]
     Active Substance: SODIUM LACTATE
     Dosage: FORMULA 1
     Route: 042
     Dates: start: 20151008, end: 20151028
  12. VAMINOLACT [Suspect]
     Active Substance: ALANINE\ARGININE\ASPARTIC ACID\CYSTEINE HYDROCHLORIDE\GLUTAMIC ACID\GLYCINE\HISTIDINE\ISOLEUCINE\LEUCINE\LYSINE ACETATE\METHIONINE\PHENYLALANINE\PROLINE\SERINE\TAURINE\THREONINE\TRYPTOPHAN\TYROSINE\VALINE
     Dosage: FORMULA 1
     Route: 042
     Dates: start: 20151008, end: 20151028
  13. OE-PEDIATRIC AGUETTANT [Suspect]
     Active Substance: MINERALS
     Dosage: FORMULA 2
     Route: 042
     Dates: start: 20150924, end: 20151007
  14. MAGNESIUM CHLORIDE. [Suspect]
     Active Substance: MAGNESIUM CHLORIDE
     Indication: PARENTERAL NUTRITION
     Dosage: FORMULA 1
     Route: 042
     Dates: end: 20150923
  15. SODIUM LACTATE. [Suspect]
     Active Substance: SODIUM LACTATE
     Indication: PARENTERAL NUTRITION
     Dosage: FORMULA 1
     Route: 042
     Dates: end: 20150923
  16. CERNEVIT [Suspect]
     Active Substance: VITAMINS
     Dosage: FORMULA 1
     Route: 042
     Dates: start: 20151008, end: 20151028
  17. POTASSIUM CHLORIDE. [Suspect]
     Active Substance: POTASSIUM CHLORIDE
     Indication: PARENTERAL NUTRITION
     Dosage: FORMULA 1
     Route: 042
     Dates: end: 20150923
  18. CALCIUM GLUCONATE. [Suspect]
     Active Substance: CALCIUM GLUCONATE
     Dosage: FORMULA 2
     Route: 042
     Dates: start: 20150924, end: 20151007
  19. SOLUTION INJECTABLE DE GLUCOSE A 50 % BAXTER, SOLUTION POUR PERFUSION [Suspect]
     Active Substance: DEXTROSE
     Dosage: FORMULA 2
     Route: 042
     Dates: start: 20150924, end: 20151007
  20. OE-PEDIATRIC AGUETTANT [Suspect]
     Active Substance: MINERALS
     Dosage: FORMULA 1
     Route: 042
     Dates: start: 20151008, end: 20151028
  21. CALCIUM GLUCONATE. [Suspect]
     Active Substance: CALCIUM GLUCONATE
     Indication: PARENTERAL NUTRITION
     Dosage: FORMULA 1
     Route: 042
     Dates: end: 20150923
  22. SOLUTION INJECTABLE DE GLUCOSE A 50 % BAXTER, SOLUTION POUR PERFUSION [Suspect]
     Active Substance: DEXTROSE
     Dosage: FORMULA 1
     Route: 042
     Dates: start: 20151008, end: 20151028
  23. VAMINOLACT [Suspect]
     Active Substance: ALANINE\ARGININE\ASPARTIC ACID\CYSTEINE HYDROCHLORIDE\GLUTAMIC ACID\GLYCINE\HISTIDINE\ISOLEUCINE\LEUCINE\LYSINE ACETATE\METHIONINE\PHENYLALANINE\PROLINE\SERINE\TAURINE\THREONINE\TRYPTOPHAN\TYROSINE\VALINE
     Indication: PARENTERAL NUTRITION
     Dosage: FORMULA 1
     Route: 042
     Dates: end: 20150923
  24. OE-PEDIATRIC AGUETTANT [Suspect]
     Active Substance: MINERALS
     Indication: PARENTERAL NUTRITION
     Dosage: FORMULA 1
     Route: 042
     Dates: end: 20150923
  25. POTASSIUM CHLORIDE. [Suspect]
     Active Substance: POTASSIUM CHLORIDE
     Dosage: FORMULA 1
     Route: 042
     Dates: start: 20151008, end: 20151028
  26. SODIUM CHLORIDE. [Suspect]
     Active Substance: SODIUM CHLORIDE
     Indication: PARENTERAL NUTRITION
     Dosage: FORMULA 1
     Route: 042
     Dates: end: 20150923
  27. MAGNESIUM CHLORIDE. [Suspect]
     Active Substance: MAGNESIUM CHLORIDE
     Dosage: FORMULA 2
     Route: 042
     Dates: start: 20150924, end: 20151007
  28. CERNEVIT [Suspect]
     Active Substance: VITAMINS
     Indication: OFF LABEL USE
     Dosage: FORMULA 2
     Route: 042
     Dates: start: 20150924, end: 20151007
  29. VAMINOLACT [Suspect]
     Active Substance: ALANINE\ARGININE\ASPARTIC ACID\CYSTEINE HYDROCHLORIDE\GLUTAMIC ACID\GLYCINE\HISTIDINE\ISOLEUCINE\LEUCINE\LYSINE ACETATE\METHIONINE\PHENYLALANINE\PROLINE\SERINE\TAURINE\THREONINE\TRYPTOPHAN\TYROSINE\VALINE
     Dosage: FORMULA 2
     Route: 042
     Dates: start: 20150924, end: 20151007
  30. SODIUM CHLORIDE. [Suspect]
     Active Substance: SODIUM CHLORIDE
     Dosage: FORMULA 1
     Route: 042
     Dates: start: 20151008, end: 20151028
  31. MAGNESIUM CHLORIDE. [Suspect]
     Active Substance: MAGNESIUM CHLORIDE
     Dosage: FORMULA 1
     Route: 042
     Dates: start: 20151008, end: 20151028
  32. SODIUM LACTATE. [Suspect]
     Active Substance: SODIUM LACTATE
     Dosage: FORMULA 2
     Route: 042
     Dates: start: 20150924, end: 20151007

REACTIONS (4)
  - Decreased insulin requirement [Not Recovered/Not Resolved]
  - Incorrect dose administered [Recovered/Resolved]
  - Weight gain poor [Not Recovered/Not Resolved]
  - Hypoglycaemia [Recovered/Resolved]

NARRATIVE: CASE EVENT DATE: 20151008
